FAERS Safety Report 8269257 (Version 3)
Quarter: 2014Q1

REPORT INFORMATION
  Report Type: Report from Study
  Country: FR (occurrence: FR)
  Receive Date: 20111130
  Receipt Date: 20140304
  Transmission Date: 20141002
  Serious: Yes (Hospitalization)
  Sender: FDA-Public Use
  Company Number: PHHY2011FR103336

PATIENT
  Age: 78 Year
  Sex: Female
  Weight: 92 kg

DRUGS (8)
  1. ACLASTA/ZOLEDRONATE [Suspect]
     Indication: OSTEOPOROTIC FRACTURE
     Dosage: UNK UKN, UNK
     Route: 042
     Dates: start: 20110715
  2. KARDEGIC [Concomitant]
     Dosage: UNK UKN, UNK
  3. ALLOPURINOL [Concomitant]
     Indication: HYPERURICAEMIA
     Dosage: 1 DF, UNK
     Dates: start: 2000
  4. CO-RENITEC [Concomitant]
     Indication: HYPERTENSION
     Dosage: 1 DF, UNK
     Dates: start: 2000
  5. FENOFIBRATE [Concomitant]
     Indication: DYSLIPIDAEMIA
     Dosage: 1 DF, UNK
     Dates: start: 1990
  6. LEVOTHYROX [Concomitant]
     Dosage: UNK UKN, UNK
  7. STRUCTUM [Concomitant]
     Dosage: UNK UKN, UNK
  8. ESOMEPRAZOLE [Concomitant]
     Dosage: UNK UKN, UNK

REACTIONS (4)
  - Arrhythmia [Not Recovered/Not Resolved]
  - Tachycardia [Recovering/Resolving]
  - Palpitations [Recovering/Resolving]
  - Malaise [Recovering/Resolving]
